FAERS Safety Report 6148433-X (Version None)
Quarter: 2009Q2

REPORT INFORMATION
  Report Type: 
  Country: None (occurrence: None)
  Receive Date: 20090408
  Receipt Date: 20090401
  Transmission Date: 20091009
  Serious: Yes (Disabling, Other)
  Sender: FDA-Public Use
  Company Number: NO-PFIZER INC-2009193345

PATIENT

DRUGS (6)
  1. LIPITOR [Suspect]
     Indication: HYPERCHOLESTEROLAEMIA
     Dosage: 40 MG, 1X/DAY
     Route: 048
     Dates: start: 20050204, end: 20050711
  2. LESCOL [Suspect]
     Indication: HYPERCHOLESTEROLAEMIA
     Dosage: 20 MG, 1X/DAY
     Route: 048
     Dates: start: 20040123, end: 20050118
  3. ZANIDIP [Concomitant]
     Route: 048
     Dates: start: 20040102, end: 20040416
  4. MICARDIS [Concomitant]
     Route: 048
     Dates: start: 20040102, end: 20041011
  5. AERIUS [Concomitant]
     Route: 048
     Dates: end: 20050101
  6. PULMICORT-100 [Concomitant]
     Route: 055

REACTIONS (5)
  - GAMMOPATHY [None]
  - MITOCHONDRIAL CYTOPATHY [None]
  - MYOPATHY [None]
  - POLYNEUROPATHY [None]
  - RAYNAUD'S PHENOMENON [None]
